FAERS Safety Report 8124102-1 (Version None)
Quarter: 2012Q1

REPORT INFORMATION
  Report Type: 
  Country: None (occurrence: None)
  Receive Date: 20120209
  Receipt Date: 20120207
  Transmission Date: 20120608
  Serious: No
  Sender: FDA-Public Use
  Company Number: US-PFIZER INC-2012034479

PATIENT
  Sex: Female
  Weight: 63.5 kg

DRUGS (6)
  1. ZOLOFT [Suspect]
     Indication: DEPRESSION
     Dosage: 50 MG, DAILY
  2. SEROQUEL XR [Concomitant]
     Indication: BIPOLAR DISORDER
     Dosage: 300 MG, DAILY
  3. TRILEPTAL [Concomitant]
     Indication: BIPOLAR DISORDER
  4. TRILEPTAL [Concomitant]
     Indication: DEPRESSION
     Dosage: 300MG IN THE MORNING AND 600MG IN THE NIGHT
  5. ZOLOFT [Suspect]
     Indication: ANXIETY
  6. WELLBUTRIN XL [Concomitant]
     Indication: DEPRESSION
     Dosage: 300 MG, DAILY

REACTIONS (1)
  - DRUG RESISTANCE [None]
